FAERS Safety Report 4584710-1 (Version None)
Quarter: 2005Q1

REPORT INFORMATION
  Report Type: 
  Country: None (occurrence: None)
  Receive Date: 20050211
  Receipt Date: 20050131
  Transmission Date: 20050727
  Serious: Yes (Hospitalization, Other)
  Sender: FDA-Public Use
  Company Number: 2005022933

PATIENT
  Age: 21 Year
  Sex: Female
  Weight: 131.0895 kg

DRUGS (5)
  1. GEODON [Suspect]
     Indication: DEPRESSION
     Dosage: 120 MG (BID INTEVAL: EVERY DAY), ORAL
     Route: 048
     Dates: start: 20040901, end: 20041215
  2. GEODON [Suspect]
     Indication: PSYCHOTIC DISORDER
     Dosage: 120 MG (BID INTEVAL: EVERY DAY), ORAL
     Route: 048
     Dates: start: 20040901, end: 20041215
  3. ALPRAZOLAM [Concomitant]
  4. RISPERDAL [Concomitant]
  5. VENLAFAXINE HCL [Concomitant]

REACTIONS (3)
  - ELECTROCARDIOGRAM QT PROLONGED [None]
  - PALPITATIONS [None]
  - SUICIDAL IDEATION [None]
